FAERS Safety Report 4423920-0 (Version None)
Quarter: 2004Q3

REPORT INFORMATION
  Report Type: 
  Country: None (occurrence: None)
  Receive Date: 20040806
  Receipt Date: 20040526
  Transmission Date: 20050211
  Serious: Yes (Hospitalization)
  Sender: FDA-Public Use
  Company Number: GBS040515006

PATIENT
  Age: 57 Year
  Sex: Female
  Weight: 68 kg

DRUGS (10)
  1. GEMCITABINE HYDROCHLORIDE-IV (GEMCITABINE) [Suspect]
     Indication: LUNG NEOPLASM MALIGNANT
     Dosage: 1750 MG
     Dates: start: 20011023
  2. CISPLATIN [Concomitant]
  3. GANCICLOVIR [Concomitant]
  4. ACETAMINOPHEN [Concomitant]
  5. DEXAMETHASONE [Concomitant]
  6. CYCLIZINE [Concomitant]
  7. ACYCLOVIR [Concomitant]
  8. CIPROFLOXACIN [Concomitant]
  9. DOMPERIDONE [Concomitant]
  10. ONDANSETRON [Concomitant]

REACTIONS (2)
  - ARTERIAL THROMBOSIS LIMB [None]
  - PERIPHERAL OCCLUSIVE DISEASE [None]
